FAERS Safety Report 4835339-9 (Version None)
Quarter: 2005Q4

REPORT INFORMATION
  Report Type: 
  Country: None (occurrence: None)
  Receive Date: 20051122
  Receipt Date: 20051103
  Transmission Date: 20060501
  Serious: No
  Sender: FDA-Public Use
  Company Number: NL-MERCK-0511NLD00005M

PATIENT
  Age: 40 Year
  Sex: Female

DRUGS (6)
  1. PROSCAR [Suspect]
     Indication: HIRSUTISM
     Route: 048
     Dates: start: 20030101, end: 20041028
  2. PROSCAR [Suspect]
     Route: 048
     Dates: start: 20050101
  3. PROSCAR [Suspect]
     Indication: POLYCYSTIC OVARIES
     Route: 048
     Dates: start: 20030101, end: 20041028
  4. PROSCAR [Suspect]
     Route: 048
     Dates: start: 20050101
  5. METFORMIN [Concomitant]
     Indication: POLYCYSTIC OVARIES
     Route: 065
  6. METHYLDOPATE HYDROCHLORIDE [Concomitant]
     Indication: HYPERTENSION
     Route: 065

REACTIONS (6)
  - CAESAREAN SECTION [None]
  - DRUG EXPOSURE DURING PREGNANCY [None]
  - HYPOSPADIAS [None]
  - OFF LABEL USE [None]
  - PREGNANCY [None]
  - WRONG TECHNIQUE IN DRUG USAGE PROCESS [None]
